FAERS Safety Report 15374891 (Version 1)
Quarter: 2018Q3

REPORT INFORMATION
  Report Type: Spontaneous
  Country: AR (occurrence: AR)
  Receive Date: 20180912
  Receipt Date: 20180912
  Transmission Date: 20181010
  Serious: Yes (Other)
  Sender: FDA-Public Use
  Company Number: PHHY2018AR089493

PATIENT
  Age: 5 Year

DRUGS (1)
  1. ILARIS [Suspect]
     Active Substance: CANAKINUMAB
     Indication: MEVALONATE KINASE DEFICIENCY
     Route: 065

REACTIONS (3)
  - Pain in extremity [Unknown]
  - Respiratory tract infection [Recovered/Resolved]
  - Muscle rigidity [Unknown]
